FAERS Safety Report 6859833-4 (Version None)
Quarter: 2010Q3

REPORT INFORMATION
  Report Type: 
  Country: None (occurrence: None)
  Receive Date: 20100720
  Receipt Date: 20100706
  Transmission Date: 20110219
  Serious: No
  Sender: FDA-Public Use
  Company Number: US-TEVA-240612USA

PATIENT
  Sex: Female
  Weight: 72.64 kg

DRUGS (2)
  1. ALBUTEROL SULFATE AUTOHALER [Suspect]
     Indication: ASTHMA
     Route: 055
     Dates: start: 20100618
  2. ALBUTEROL SULFATE AUTOHALER [Suspect]
     Indication: MULTIPLE ALLERGIES

REACTIONS (1)
  - FOREIGN BODY ASPIRATION [None]
